FAERS Safety Report 13048317 (Version 1)
Quarter: 2016Q4

REPORT INFORMATION
  Report Type: Spontaneous
  Country: US (occurrence: US)
  Receive Date: 20161220
  Receipt Date: 20161220
  Transmission Date: 20170207
  Serious: No
  Sender: FDA-Public Use
  Company Number: None

PATIENT
  Age: 5 Year
  Sex: Female
  Weight: 20.7 kg

DRUGS (1)
  1. CHILDREN^S FLUTICASONE PROPIONAT [Suspect]
     Active Substance: FLUTICASONE PROPIONATE
     Indication: NASAL CONGESTION
     Dosage: ?          QUANTITY:1 SPRAY(S);OTHER ROUTE:NASAL SPRAY?
     Dates: start: 20161207, end: 20161218

REACTIONS (1)
  - Obsessive-compulsive disorder [None]

NARRATIVE: CASE EVENT DATE: 20161220
